FAERS Safety Report 6051705-0 (Version None)
Quarter: 2009Q1

REPORT INFORMATION
  Report Type: 
  Country: None (occurrence: None)
  Receive Date: 20090126
  Receipt Date: 20090113
  Transmission Date: 20090719
  Serious: Yes (Death)
  Sender: FDA-Public Use
  Company Number: GB-ROCHE-608147

PATIENT
  Age: 81 Year
  Sex: Female

DRUGS (1)
  1. VALCYTE [Suspect]
     Route: 065

REACTIONS (1)
  - DEATH [None]
